FAERS Safety Report 6845695-8 (Version None)
Quarter: 2010Q3

REPORT INFORMATION
  Report Type: 
  Country: None (occurrence: None)
  Receive Date: 20100715
  Receipt Date: 20080131
  Transmission Date: 20110219
  Serious: No
  Sender: FDA-Public Use
  Company Number: US-PFIZER INC-2007068870

PATIENT
  Sex: Male
  Weight: 93 kg

DRUGS (12)
  1. CHANTIX [Suspect]
     Indication: SMOKING CESSATION THERAPY
     Dates: start: 20070301
  2. NEURONTIN [Concomitant]
  3. ACETYLSALICYLIC ACID [Concomitant]
  4. AMBIEN [Concomitant]
  5. PRILOSEC [Concomitant]
  6. ISOSORBIDE [Concomitant]
  7. ZOCOR [Concomitant]
  8. PLAVIX [Concomitant]
  9. TRAZODONE HYDROCHLORIDE [Concomitant]
  10. LOPRESSOR [Concomitant]
  11. OXYCONTIN [Concomitant]
     Indication: PAIN
  12. METHADONE HCL [Concomitant]
     Indication: BREAKTHROUGH PAIN

REACTIONS (1)
  - NAUSEA [None]
